FAERS Safety Report 14746315 (Version 1)
Quarter: 2018Q2

REPORT INFORMATION
  Report Type: Report from Study
  Country: CA (occurrence: CA)
  Receive Date: 20180411
  Receipt Date: 20180411
  Transmission Date: 20180711
  Serious: Yes (Other)
  Sender: FDA-Public Use
  Company Number: CA-JNJFOC-20180407862

PATIENT
  Age: 4 Year
  Sex: Female
  Weight: 26.7 kg

DRUGS (1)
  1. REMICADE [Suspect]
     Active Substance: INFLIXIMAB
     Indication: TAKAYASU^S ARTERITIS
     Dosage: STRENGTH = 100 MG
     Route: 042
     Dates: start: 20160425

REACTIONS (3)
  - Product use in unapproved indication [Unknown]
  - Transient ischaemic attack [Recovering/Resolving]
  - Off label use [Unknown]

NARRATIVE: CASE EVENT DATE: 20160425
